FAERS Safety Report 4784794-1 (Version None)
Quarter: 2005Q3

REPORT INFORMATION
  Report Type: 
  Country: None (occurrence: None)
  Receive Date: 20050929
  Receipt Date: 20050929
  Transmission Date: 20060218
  Serious: Yes (Hospitalization)
  Sender: FDA-Public Use
  Company Number: None

PATIENT
  Age: 52 Year
  Sex: Female
  Weight: 71 kg

DRUGS (1)
  1. AMPHOTERICIN B [Suspect]
     Indication: PNEUMONIA FUNGAL
     Dosage: 36 MG IV DAILY
     Route: 042
     Dates: start: 20050907

REACTIONS (3)
  - BODY TEMPERATURE INCREASED [None]
  - HEART RATE INCREASED [None]
  - INFUSION RELATED REACTION [None]
